FAERS Safety Report 10243522 (Version 1)
Quarter: 2014Q2

REPORT INFORMATION
  Report Type: Spontaneous
  Country: US (occurrence: None)
  Receive Date: 20140616
  Receipt Date: 20140616
  Transmission Date: 20141212
  Serious: Yes (Hospitalization)
  Sender: FDA-Public Use
  Company Number: None

PATIENT
  Age: 42 Year
  Sex: Female
  Weight: 68.95 kg

DRUGS (1)
  1. FLEXERIL [Suspect]
     Indication: BACK PAIN
     Dosage: 2 PILLS PERDAY, TWICE DAILY, TAKEN BY MOUTH
     Route: 048
     Dates: start: 20140606, end: 20140607

REACTIONS (5)
  - Hallucination [None]
  - Blood pressure increased [None]
  - Dizziness [None]
  - Vision blurred [None]
  - Malaise [None]
